FAERS Safety Report 20470143 (Version 2)
Quarter: 2022Q2

REPORT INFORMATION
  Report Type: Spontaneous
  Country: JP (occurrence: JP)
  Receive Date: 20220214
  Receipt Date: 20220413
  Transmission Date: 20220721
  Serious: Yes (Other)
  Sender: FDA-Public Use
  Company Number: JP-BAYER-2022A022271

PATIENT
  Age: 53 Year
  Sex: Female
  Weight: 66 kg

DRUGS (10)
  1. STIVARGA [Suspect]
     Active Substance: REGORAFENIB
     Indication: Colorectal cancer
     Dosage: DAILY DOSE 3DF(120MG), 21 DAYS ADMINISTRATION 14 DAYS WITHDRAWAL
     Dates: start: 20211220, end: 20220120
  2. STIVARGA [Suspect]
     Active Substance: REGORAFENIB
     Indication: Colorectal cancer
     Dosage: DAILY DOSE 2DF, 3 WEEKS ADMINISTRATION 1 WEEK WITHDRAWAL
     Dates: start: 20220121, end: 20220317
  3. STIVARGA [Suspect]
     Active Substance: REGORAFENIB
     Indication: Colorectal cancer
     Dosage: DAILY DOSE 3DF, 3 WEEKS ADMINISTRATION 1 WEEK WITHDRAWAL
     Dates: start: 20220318
  4. MIROGABALIN BESYLATE [Concomitant]
     Active Substance: MIROGABALIN BESYLATE
     Dosage: DAILY DOSE 5 MG
     Route: 048
  5. LANSOPRAZOLE [Concomitant]
     Active Substance: LANSOPRAZOLE
     Dosage: DAILY DOSE 30 MG
     Route: 048
  6. MABUTEROL HYDROCHLORIDE [Concomitant]
     Active Substance: MABUTEROL HYDROCHLORIDE
     Indication: Constipation prophylaxis
     Dosage: DAILY DOSE 330 MG
     Route: 048
  7. CEPHARANTHINE [Concomitant]
     Active Substance: CEPHARANTHINE
     Indication: Neutrophil count decreased
     Dosage: DAILY DOSE 6 MG
     Route: 048
  8. ROZEREM [Concomitant]
     Active Substance: RAMELTEON
     Dosage: DAILY DOSE 8 MG
     Route: 048
  9. URSO [Concomitant]
     Active Substance: URSODIOL
     Dosage: DAILY DOSE 150 MG
     Route: 048
  10. LUNESTA [Concomitant]
     Active Substance: ESZOPICLONE
     Dosage: DAILY DOSE 1 MG
     Route: 048

REACTIONS (2)
  - Gallbladder oedema [Not Recovered/Not Resolved]
  - Off label use [None]
